FAERS Safety Report 11790393 (Version 1)
Quarter: 2015Q4

REPORT INFORMATION
  Report Type: Spontaneous
  Country: CN (occurrence: CN)
  Receive Date: 20151201
  Receipt Date: 20151201
  Transmission Date: 20160305
  Serious: Yes (Other)
  Sender: FDA-Public Use
  Company Number: CN-NOVOPROD-471567

PATIENT
  Age: 83 Year
  Sex: Male
  Weight: 80 kg

DRUGS (2)
  1. NOVOLIN R [Suspect]
     Active Substance: INSULIN HUMAN
     Indication: DIABETES MELLITUS
     Dosage: 20 IU, BID
     Route: 065
     Dates: start: 20100319, end: 20150620
  2. METFORMIN HYDROCHLORIDE. [Suspect]
     Active Substance: METFORMIN HYDROCHLORIDE
     Indication: DIABETES MELLITUS
     Dosage: 0.5 G, TID
     Route: 048
     Dates: start: 20150401, end: 20150404

REACTIONS (2)
  - Gastrointestinal disorder [None]
  - Abdominal pain [Recovering/Resolving]

NARRATIVE: CASE EVENT DATE: 20150404
